FAERS Safety Report 23414538 (Version 1)
Quarter: 2024Q1

REPORT INFORMATION
  Report Type: Report from Study
  Country: CL (occurrence: CL)
  Receive Date: 20240118
  Receipt Date: 20240118
  Transmission Date: 20240409
  Serious: Yes (Other)
  Sender: FDA-Public Use
  Company Number: CL-Merck Healthcare KGaA-2024001852

PATIENT
  Age: 11 Year
  Sex: Female

DRUGS (1)
  1. SAIZEN [Suspect]
     Active Substance: SOMATROPIN
     Indication: Short stature
     Route: 058
     Dates: start: 20230405

REACTIONS (6)
  - Radius fracture [Recovered/Resolved]
  - Wrist fracture [Recovered/Resolved]
  - Ulna fracture [Recovered/Resolved]
  - Fracture nonunion [Unknown]
  - Callus formation delayed [Unknown]
  - Off label use [Unknown]

NARRATIVE: CASE EVENT DATE: 20231001
